FAERS Safety Report 8774835 (Version 3)
Quarter: 2013Q1

REPORT INFORMATION
  Report Type: Report from Study
  Country: CA (occurrence: CA)
  Receive Date: 20120910
  Receipt Date: 20130301
  Transmission Date: 20140127
  Serious: Yes (Hospitalization)
  Sender: FDA-Public Use
  Company Number: CA-JNJFOC-20120814958

PATIENT
  Age: 79 None
  Sex: Male
  Weight: 65.9 kg

DRUGS (15)
  1. REMICADE [Suspect]
     Indication: RHEUMATOID ARTHRITIS
     Dosage: LAST INFLIXIMAB INFUSION
     Route: 042
     Dates: start: 20120703
  2. REMICADE [Suspect]
     Indication: RHEUMATOID ARTHRITIS
     Route: 042
     Dates: start: 20080204
  3. FOLIC ACID [Concomitant]
     Route: 065
  4. SULFASALAZINE [Concomitant]
     Route: 065
  5. METHOTREXATE [Concomitant]
     Route: 065
  6. CITALOPRAM [Concomitant]
     Route: 065
  7. PANTOLOC [Concomitant]
     Route: 065
  8. PREDNISONE [Concomitant]
     Route: 065
  9. SPIRIVA [Concomitant]
     Route: 065
  10. VENTOLIN [Concomitant]
     Route: 065
  11. ASA [Concomitant]
     Route: 065
  12. POTASSIUM [Concomitant]
     Route: 065
  13. ADVAIR [Concomitant]
     Route: 065
  14. FLOMAX [Concomitant]
     Route: 065
  15. LASIX [Concomitant]
     Route: 065

REACTIONS (8)
  - Lung infection [Not Recovered/Not Resolved]
  - Dyspnoea [Unknown]
  - Oxygen saturation decreased [Unknown]
  - Dehydration [Unknown]
  - Infection [Unknown]
  - Cardiac failure congestive [Unknown]
  - Pleural effusion [Unknown]
  - Decreased appetite [Unknown]
